FAERS Safety Report 9805735 (Version 2)
Quarter: 2014Q2

REPORT INFORMATION
  Report Type: Spontaneous
  Country: US (occurrence: US)
  Receive Date: 20140109
  Receipt Date: 20140410
  Transmission Date: 20141212
  Serious: Yes (Other)
  Sender: FDA-Public Use
  Company Number: PHEH2014US000539

PATIENT
  Age: 66 Year
  Sex: Male
  Weight: 79.37 kg

DRUGS (8)
  1. GILENYA [Suspect]
     Indication: MULTIPLE SCLEROSIS
     Dosage: 0.5 MG, QD
     Route: 048
     Dates: start: 20111201, end: 20140101
  2. VALSARTAN HCTZ [Concomitant]
     Indication: BLOOD PRESSURE INCREASED
     Route: 048
  3. NORVASC [Concomitant]
     Indication: BLOOD PRESSURE INCREASED
     Route: 048
  4. TRILEPTAL [Concomitant]
     Indication: MUSCLE SPASMS
     Route: 048
  5. GABAPENTIN [Concomitant]
     Indication: NEURALGIA
     Route: 048
  6. CRESTOR [Concomitant]
     Indication: LIPIDS INCREASED
     Route: 048
  7. VITAMIN D [Concomitant]
     Dosage: 4000 IU, QD
     Route: 048
  8. IBUPROFEN [Concomitant]
     Dosage: 400 MG, BID

REACTIONS (2)
  - Malignant melanoma [Recovered/Resolved]
  - Squamous cell carcinoma of skin [Unknown]
